FAERS Safety Report 18084529 (Version 1)
Quarter: 2020Q3

REPORT INFORMATION
  Report Type: Spontaneous
  Country: FI (occurrence: FI)
  Receive Date: 20200729
  Receipt Date: 20200729
  Transmission Date: 20201103
  Serious: Yes (Hospitalization, Other)
  Sender: FDA-Public Use
  Company Number: FI-LUPIN PHARMACEUTICALS INC.-2020-03840

PATIENT
  Sex: Male

DRUGS (6)
  1. DIVALPROEX SODIUM. [Suspect]
     Active Substance: DIVALPROEX SODIUM
     Indication: AKATHISIA
  2. DIVALPROEX SODIUM. [Suspect]
     Active Substance: DIVALPROEX SODIUM
     Indication: DISORIENTATION
  3. PERPHENAZINE. [Suspect]
     Active Substance: PERPHENAZINE
     Indication: SCHIZOAFFECTIVE DISORDER
     Dosage: UNK
     Route: 048
  4. QUETIAPINE FUMARATE. [Suspect]
     Active Substance: QUETIAPINE FUMARATE
     Indication: SCHIZOAFFECTIVE DISORDER
     Dosage: UNK
     Route: 048
  5. ARIPIPRAZOLE. [Suspect]
     Active Substance: ARIPIPRAZOLE
     Indication: SCHIZOAFFECTIVE DISORDER
     Dosage: UNK
     Route: 048
  6. DIVALPROEX SODIUM. [Suspect]
     Active Substance: DIVALPROEX SODIUM
     Indication: RESTLESSNESS
     Dosage: 500 MILLIGRAM, QD
     Route: 065

REACTIONS (1)
  - Neuroleptic malignant syndrome [Recovered/Resolved]
